FAERS Safety Report 11326833 (Version 1)
Quarter: 2015Q3

REPORT INFORMATION
  Report Type: Spontaneous
  Country: US (occurrence: US)
  Receive Date: 20150731
  Receipt Date: 20150731
  Transmission Date: 20151125
  Serious: Yes (Other)
  Sender: FDA-Public Use
  Company Number: CHPA2015US008910

PATIENT
  Sex: Female

DRUGS (1)
  1. EX-LAX REGULAR STRENGTH STIMULANT LAXATIVE [Suspect]
     Active Substance: SENNOSIDES
     Indication: GASTROINTESTINAL DISORDER
     Dosage: UNK
     Route: 065

REACTIONS (4)
  - Malaise [Unknown]
  - Nausea [Unknown]
  - Hyperhidrosis [Unknown]
  - Drug dependence [Unknown]
